FAERS Safety Report 12568263 (Version 1)
Quarter: 2016Q3

REPORT INFORMATION
  Report Type: Spontaneous
  Country: US (occurrence: US)
  Receive Date: 20160718
  Receipt Date: 20160718
  Transmission Date: 20161109
  Serious: Yes (Other)
  Sender: FDA-Public Use
  Company Number: US-ALLERGAN-1660872US

PATIENT
  Sex: Female

DRUGS (1)
  1. BOTOX [Suspect]
     Active Substance: ONABOTULINUMTOXINA
     Indication: MIGRAINE
     Dosage: UNK, SINGLE
     Route: 030
     Dates: start: 20160509, end: 20160509

REACTIONS (7)
  - Swelling [Unknown]
  - Abdominal pain upper [Unknown]
  - Oxygen saturation decreased [Unknown]
  - Anaphylactic reaction [Unknown]
  - Pharyngeal oedema [Unknown]
  - Oral pruritus [Unknown]
  - Urticaria [Unknown]

NARRATIVE: CASE EVENT DATE: 201605
